FAERS Safety Report 7006165-X (Version None)
Quarter: 2010Q3

REPORT INFORMATION
  Report Type: 
  Country: None (occurrence: None)
  Receive Date: 20100921
  Receipt Date: 20100910
  Transmission Date: 20110219
  Serious: Yes (Hospitalization, Other)
  Sender: FDA-Public Use
  Company Number: JP-PFIZER INC-2010101694

PATIENT
  Age: 88 Year
  Sex: Female

DRUGS (6)
  1. ZOLOFT [Suspect]
     Dosage: UNK
     Route: 048
     Dates: start: 20100729, end: 20100802
  2. MUCOSTA [Concomitant]
     Dosage: UNK
     Route: 048
  3. BISOLVON [Concomitant]
     Dosage: UNK
     Route: 048
  4. RIZE [Concomitant]
     Dosage: UNK
     Route: 048
  5. LORAZEPAM [Concomitant]
     Dosage: UNK
     Route: 048
  6. ASPIRINE [Concomitant]
     Dosage: UNK
     Route: 048

REACTIONS (3)
  - ALTERED STATE OF CONSCIOUSNESS [None]
  - HALLUCINATION [None]
  - INAPPROPRIATE ANTIDIURETIC HORMONE SECRETION [None]
